FAERS Safety Report 13134609 (Version 2)
Quarter: 2017Q1

REPORT INFORMATION
  Report Type: Spontaneous
  Country: JP (occurrence: JP)
  Receive Date: 20170120
  Receipt Date: 20170216
  Transmission Date: 20170428
  Serious: Yes (Other)
  Sender: FDA-Public Use
  Company Number: JP-BAYER-2017-007691

PATIENT
  Sex: Female
  Weight: 1.48 kg

DRUGS (1)
  1. BAYASPIRIN 100 MG [Suspect]
     Active Substance: ASPIRIN
     Dosage: UNK
     Route: 064

REACTIONS (8)
  - Foetal growth restriction [None]
  - Neonatal alloimmune thrombocytopenia [None]
  - Platelet count decreased [None]
  - Petechiae [None]
  - Low birth weight baby [None]
  - Apgar score low [None]
  - Premature baby [None]
  - Foetal exposure during pregnancy [Recovered/Resolved]
